FAERS Safety Report 24562044 (Version 1)
Quarter: 2024Q4

REPORT INFORMATION
  Report Type: Spontaneous
  Country: TR (occurrence: TR)
  Receive Date: 20241029
  Receipt Date: 20241029
  Transmission Date: 20250115
  Serious: Yes (Death, Other)
  Sender: STRIDES
  Company Number: TR-STRIDES ARCOLAB LIMITED-2024SP013931

PATIENT
  Age: 17 Year
  Sex: Male

DRUGS (16)
  1. ETOPOSIDE [Suspect]
     Active Substance: ETOPOSIDE
     Indication: NUT midline carcinoma
     Dosage: 150 MILLIGRAM/SQ. METER, CYCLICAL
     Route: 065
  2. ETOPOSIDE [Suspect]
     Active Substance: ETOPOSIDE
     Indication: Laryngeal cancer
  3. DOCETAXEL [Suspect]
     Active Substance: DOCETAXEL
     Indication: NUT midline carcinoma
     Dosage: 60 MILLIGRAM/SQ. METER, QD, ON DAY 1; EVERY 21 DAYS (CYCLICAL)
     Route: 065
  4. DOCETAXEL [Suspect]
     Active Substance: DOCETAXEL
     Indication: Laryngeal cancer
  5. CISPLATIN [Suspect]
     Active Substance: CISPLATIN
     Indication: NUT midline carcinoma
     Dosage: 25 MILLIGRAM/SQ. METER, QD, ON DAYS 1-3; EVERY 21 DAYS (CYCLICAL)
     Route: 065
  6. CISPLATIN [Suspect]
     Active Substance: CISPLATIN
     Indication: Laryngeal cancer
     Dosage: 35 MILLIGRAM/SQ. METER, QD, SIX CYCLES
     Route: 065
  7. IFOSFAMIDE [Suspect]
     Active Substance: IFOSFAMIDE
     Indication: NUT midline carcinoma
     Dosage: 1.8 GRAM PER SQUARE METRE, CYCLICAL
     Route: 065
  8. IFOSFAMIDE [Suspect]
     Active Substance: IFOSFAMIDE
     Indication: Laryngeal cancer
  9. CARBOPLATIN [Suspect]
     Active Substance: CARBOPLATIN
     Indication: NUT midline carcinoma
     Dosage: 250 MILLIGRAM/SQ. METER, CYCLICAL
     Route: 065
  10. CARBOPLATIN [Suspect]
     Active Substance: CARBOPLATIN
     Indication: Laryngeal cancer
  11. NIVOLUMAB [Suspect]
     Active Substance: NIVOLUMAB
     Indication: NUT midline carcinoma
     Dosage: 3 MILLIGRAM/KILOGRAM, EVERY 3 WEEKS (CYCLICAL)
     Route: 065
  12. NIVOLUMAB [Suspect]
     Active Substance: NIVOLUMAB
     Indication: Laryngeal cancer
  13. VORINOSTAT [Suspect]
     Active Substance: VORINOSTAT
     Indication: NUT midline carcinoma
     Dosage: 230 MILLIGRAM/SQ. METER, QD (CYCLICAL)
     Route: 065
  14. VORINOSTAT [Suspect]
     Active Substance: VORINOSTAT
     Indication: Laryngeal cancer
  15. BEVACIZUMAB [Suspect]
     Active Substance: BEVACIZUMAB
     Indication: NUT midline carcinoma
     Dosage: 10 MILLIGRAM/KILOGRAM
     Route: 065
  16. BEVACIZUMAB [Suspect]
     Active Substance: BEVACIZUMAB
     Indication: Laryngeal cancer

REACTIONS (4)
  - Death [Fatal]
  - Drug ineffective [Unknown]
  - Malignant neoplasm progression [Unknown]
  - Off label use [Unknown]
